FAERS Safety Report 9235897 (Version 1)
Quarter: 2013Q2

REPORT INFORMATION
  Report Type: Spontaneous
  Country: CY (occurrence: CY)
  Receive Date: 20130417
  Receipt Date: 20130417
  Transmission Date: 20140414
  Serious: Yes (Other)
  Sender: FDA-Public Use
  Company Number: CY-ELI_LILLY_AND_COMPANY-CY201304001605

PATIENT
  Age: 64 Year
  Sex: Female

DRUGS (7)
  1. CYMBALTA [Suspect]
     Indication: GENERALISED ANXIETY DISORDER
     Dosage: UNK, QD
     Dates: start: 20130308, end: 20130309
  2. CYMBALTA [Suspect]
     Dosage: UNK, QD
     Dates: start: 20130314, end: 20130315
  3. GLUCOSAMINE [Concomitant]
  4. B COMPLEX [Concomitant]
  5. AZILECT [Concomitant]
     Indication: PARKINSON^S DISEASE
     Dosage: UNK
     Dates: start: 201302
  6. SINEMET [Concomitant]
     Indication: PARKINSON^S DISEASE
     Dosage: UNK, TID
     Dates: start: 201301
  7. LANSOPRAZOLE [Concomitant]

REACTIONS (14)
  - Throat tightness [Recovered/Resolved]
  - VIIth nerve paralysis [Recovered/Resolved]
  - Throat tightness [Recovered/Resolved]
  - VIIth nerve paralysis [Recovered/Resolved]
  - Muscle tightness [Recovered/Resolved]
  - Abnormal sensation in eye [Recovered/Resolved]
  - Dry mouth [Recovered/Resolved]
  - Dysgeusia [Recovered/Resolved]
  - Excessive eye blinking [Recovered/Resolved]
  - Muscle tightness [Recovered/Resolved]
  - Abnormal sensation in eye [Recovered/Resolved]
  - Dry mouth [Recovered/Resolved]
  - Dysgeusia [Recovered/Resolved]
  - Excessive eye blinking [Recovered/Resolved]
